FAERS Safety Report 20889496 (Version 1)
Quarter: 2022Q2

REPORT INFORMATION
  Report Type: Spontaneous
  Country: PT (occurrence: PT)
  Receive Date: 20220530
  Receipt Date: 20220530
  Transmission Date: 20220721
  Serious: Yes (Death, Other)
  Sender: FDA-Public Use
  Company Number: PT-NOVOPROD-866965

PATIENT
  Age: 61 Year
  Sex: Male
  Weight: 92 kg

DRUGS (1)
  1. OZEMPIC [Suspect]
     Active Substance: SEMAGLUTIDE
     Indication: Diabetes mellitus
     Dosage: MG
     Route: 065
     Dates: start: 20211013, end: 20211021

REACTIONS (3)
  - Death [Fatal]
  - Pain [Recovered/Resolved]
  - Hangover [Recovered/Resolved]

NARRATIVE: CASE EVENT DATE: 20211013
